FAERS Safety Report 10770354 (Version 1)
Quarter: 2015Q1

REPORT INFORMATION
  Report Type: Spontaneous
  Country: CA (occurrence: CA)
  Receive Date: 20150206
  Receipt Date: 20150206
  Transmission Date: 20150721
  Serious: Yes (Death)
  Sender: FDA-Public Use
  Company Number: CA-B.I. PHARMACEUTICALS,INC./RIDGEFIELD-2015-BI-06116CN

PATIENT
  Age: 84 Year
  Sex: Female

DRUGS (1)
  1. PRADAXA [Suspect]
     Active Substance: DABIGATRAN ETEXILATE MESYLATE
     Indication: ATRIAL FIBRILLATION
     Dosage: 220 MG
     Route: 065
     Dates: start: 20140713

REACTIONS (1)
  - Haemorrhage intracranial [Fatal]

NARRATIVE: CASE EVENT DATE: 2014
